FAERS Safety Report 15753827 (Version 3)
Quarter: 2019Q3

REPORT INFORMATION
  Report Type: Spontaneous
  Country: FR (occurrence: FR)
  Receive Date: 20181222
  Receipt Date: 20190905
  Transmission Date: 20191004
  Serious: Yes (Hospitalization, Congenital Anomaly, Other)
  Sender: FDA-Public Use
  Company Number: PHHY2018FR189708

PATIENT
  Sex: Male
  Weight: 2.78 kg

DRUGS (5)
  1. LACOSAMIDE. [Suspect]
     Active Substance: LACOSAMIDE
     Indication: FOETAL EXPOSURE DURING PREGNANCY
     Dosage: UNK
     Route: 064
  2. LAMOTRIGINE. [Concomitant]
     Active Substance: LAMOTRIGINE
     Indication: EPILEPSY
     Route: 064
  3. COCAINE [Suspect]
     Active Substance: COCAINE
     Indication: FOETAL EXPOSURE DURING PREGNANCY
     Dosage: UNK
     Route: 064
  4. LAMOTRIGINE. [Suspect]
     Active Substance: LAMOTRIGINE
     Indication: FOETAL EXPOSURE DURING PREGNANCY
     Dosage: UNK
     Route: 064
  5. LACOSAMIDE. [Suspect]
     Active Substance: LACOSAMIDE
     Route: 064

REACTIONS (17)
  - Lymphoedema [Recovered/Resolved]
  - Hypoplastic left heart syndrome [Recovering/Resolving]
  - Aortic valve atresia [Recovering/Resolving]
  - Pleural effusion [Recovered/Resolved]
  - Ascites [Recovered/Resolved]
  - Aortic stenosis [Unknown]
  - Exposure during pregnancy [Unknown]
  - Ischaemia [Recovered/Resolved]
  - Coarctation of the aorta [Recovered/Resolved]
  - Growth retardation [Recovered/Resolved]
  - Congenital aortic stenosis [Recovered/Resolved]
  - Foetal exposure during pregnancy [Unknown]
  - Congenital aortic atresia [Recovered/Resolved]
  - Hydrops foetalis [Recovered/Resolved]
  - Oedema [Recovered/Resolved]
  - Toxicity to various agents [Recovered/Resolved]
  - Foetal alcohol syndrome [Recovered/Resolved]
